FAERS Safety Report 4891914-7 (Version None)
Quarter: 2006Q1

REPORT INFORMATION
  Report Type: 
  Country: None (occurrence: None)
  Receive Date: 20060123
  Receipt Date: 20060111
  Transmission Date: 20060701
  Serious: Yes (Hospitalization, Other)
  Sender: FDA-Public Use
  Company Number: 2006008308

PATIENT
  Age: 40 Year
  Sex: Male

DRUGS (2)
  1. AZULFIDINE [Suspect]
     Indication: POLYARTHRITIS
     Dates: start: 20050501
  2. METHOTREXATE [Suspect]
     Indication: POLYARTHRITIS
     Dates: start: 20050501

REACTIONS (1)
  - CONVULSION [None]
